FAERS Safety Report 5657331-7 (Version None)
Quarter: 2008Q1

REPORT INFORMATION
  Report Type: 
  Country: None (occurrence: None)
  Receive Date: 20080307
  Receipt Date: 20080307
  Transmission Date: 20080703
  Serious: No
  Sender: FDA-Public Use
  Company Number: None

PATIENT
  Sex: Male
  Weight: 66.4 kg

DRUGS (4)
  1. BEVACIZUMAB (RHUMAB VEGF) 674 MG [Suspect]
     Dosage: 674 MG
  2. ELOXATIN [Suspect]
     Dosage: 308 MG
  3. CAMPTOSAR [Suspect]
     Dosage: 545 MG
  4. NORVASC [Concomitant]

REACTIONS (1)
  - HYPOKALAEMIA [None]
